FAERS Safety Report 4761249-1 (Version None)
Quarter: 2005Q3

REPORT INFORMATION
  Report Type: 
  Country: None (occurrence: None)
  Receive Date: 20050902
  Receipt Date: 20050902
  Transmission Date: 20060218
  Serious: Yes (Life-Threatening, Hospitalization)
  Sender: FDA-Public Use
  Company Number: None

PATIENT
  Age: 45 Year
  Sex: Male
  Weight: 90.7194 kg

DRUGS (1)
  1. CELEBREX [Suspect]
     Indication: INFLAMMATION
     Dosage: 200 M X / DAY

REACTIONS (2)
  - ARTERIAL RUPTURE [None]
  - MYOCARDIAL INFARCTION [None]
